FAERS Safety Report 9078624 (Version 1)
Quarter: 2013Q1

REPORT INFORMATION
  Report Type: Spontaneous
  Country: US (occurrence: US)
  Receive Date: 20130130
  Receipt Date: 20130130
  Transmission Date: 20140127
  Serious: Yes (Other)
  Sender: FDA-Public Use
  Company Number: US-JNJFOC-20130111437

PATIENT
  Age: 42 Year
  Sex: Female
  Weight: 63.05 kg

DRUGS (7)
  1. REMICADE [Suspect]
     Indication: CROHN^S DISEASE
     Route: 042
     Dates: start: 20121216, end: 20130116
  2. BENADRYL [Concomitant]
     Indication: PREMEDICATION
     Route: 048
     Dates: start: 20130116
  3. NORTRIPTYLINE [Concomitant]
     Route: 065
  4. TYLENOL PM [Concomitant]
     Route: 065
  5. VITAMIN B12 [Concomitant]
     Route: 065
  6. PHENERGAN [Concomitant]
     Route: 065
  7. PERCOCET [Concomitant]
     Route: 065

REACTIONS (3)
  - Infusion related reaction [Recovered/Resolved]
  - Red man syndrome [Recovered/Resolved]
  - Anaphylactic reaction [Recovered/Resolved]
